FAERS Safety Report 22287381 (Version 1)
Quarter: 2023Q2

REPORT INFORMATION
  Report Type: Spontaneous
  Country: DE (occurrence: DE)
  Receive Date: 20230505
  Receipt Date: 20230505
  Transmission Date: 20230721
  Serious: Yes (Other)
  Sender: FDA-Public Use
  Company Number: DE-009507513-2305DEU001737

PATIENT
  Age: 39 Year
  Sex: Female

DRUGS (1)
  1. PEMBROLIZUMAB [Suspect]
     Active Substance: PEMBROLIZUMAB
     Dosage: 200 MILLIGRAM
     Dates: start: 201906

REACTIONS (9)
  - Laparotomy [Unknown]
  - Gastrectomy [Unknown]
  - Pancreaticosplenectomy [Unknown]
  - Colectomy [Unknown]
  - Colostomy [Unknown]
  - Ileostomy [Unknown]
  - Malignant neoplasm progression [Unknown]
  - Therapy partial responder [Unknown]
  - Off label use [Unknown]

NARRATIVE: CASE EVENT DATE: 20190101
